FAERS Safety Report 5109159-4 (Version None)
Quarter: 2006Q3

REPORT INFORMATION
  Report Type: 
  Country: None (occurrence: None)
  Receive Date: 20060920
  Receipt Date: 20060911
  Transmission Date: 20061208
  Serious: Yes (Other)
  Sender: FDA-Public Use
  Company Number: PHBS2006NL13726

PATIENT
  Age: 46 Year
  Sex: Female
  Weight: 65 kg

DRUGS (1)
  1. RITALIN [Suspect]
     Indication: ATTENTION DEFICIT/HYPERACTIVITY DISORDER
     Dosage: 10 MG, 5QD
     Route: 048
     Dates: start: 20040701, end: 20041101

REACTIONS (3)
  - PALPITATIONS [None]
  - VISUAL ACUITY REDUCED [None]
  - WEIGHT DECREASED [None]
